FAERS Safety Report 20854230 (Version 1)
Quarter: 2022Q2

REPORT INFORMATION
  Report Type: Spontaneous
  Country: US (occurrence: None)
  Receive Date: 20220519
  Receipt Date: 20220519
  Transmission Date: 20220721
  Serious: No
  Sender: FDA-Public Use
  Company Number: None

PATIENT
  Age: 50 Year
  Sex: Male
  Weight: 105.75 kg

DRUGS (4)
  1. PAXLOVID [Suspect]
     Active Substance: NIRMATRELVIR\RITONAVIR
     Indication: COVID-19
     Route: 048
     Dates: start: 20220507, end: 20220512
  2. diabetic medications [Concomitant]
  3. LOSARTAN [Concomitant]
     Active Substance: LOSARTAN
  4. LAMOTRIGINE [Concomitant]
     Active Substance: LAMOTRIGINE

REACTIONS (8)
  - Taste disorder [None]
  - Gastric disorder [None]
  - Tremor [None]
  - Pyrexia [None]
  - Fatigue [None]
  - Dyspnoea [None]
  - Feeding disorder [None]
  - COVID-19 [None]

NARRATIVE: CASE EVENT DATE: 20220510
